FAERS Safety Report 23297928 (Version 2)
Quarter: 2023Q4

REPORT INFORMATION
  Report Type: Spontaneous
  Country: BE (occurrence: BE)
  Receive Date: 20231214
  Receipt Date: 20231227
  Transmission Date: 20240110
  Serious: Yes (Other)
  Sender: FDA-Public Use
  Company Number: BE-SANDOZ-SDZ2023BE067852

PATIENT
  Age: 31 Year
  Sex: Male

DRUGS (1)
  1. ADALIMUMAB [Suspect]
     Active Substance: ADALIMUMAB\ISOPROPYL ALCOHOL
     Indication: Crohn^s disease
     Route: 065

REACTIONS (2)
  - Hypersensitivity pneumonitis [Unknown]
  - Treatment noncompliance [Unknown]
